FAERS Safety Report 5274789-6 (Version None)
Quarter: 2007Q1

REPORT INFORMATION
  Report Type: 
  Country: None (occurrence: None)
  Receive Date: 20070321
  Receipt Date: 20070103
  Transmission Date: 20070707
  Serious: Yes (Other)
  Sender: FDA-Public Use
  Company Number: 232787K06USA

PATIENT
  Age: 56 Year
  Sex: Female

DRUGS (5)
  1. REBIF [Suspect]
     Indication: MULTIPLE SCLEROSIS
     Dosage: 44 MCG, 3 IN 1 WEEKS, SUBCUTANEOUS
     Route: 058
     Dates: start: 20030409
  2. METOPROLOL (METOPROLOL /00376901/) [Concomitant]
  3. DIOVAN [Concomitant]
  4. ZOCOR [Concomitant]
  5. ASPIRIN [Concomitant]

REACTIONS (1)
  - DIABETES MELLITUS [None]
